FAERS Safety Report 12269736 (Version 7)
Quarter: 2016Q4

REPORT INFORMATION
  Report Type: Report from Study
  Country: JP (occurrence: JP)
  Receive Date: 20160414
  Receipt Date: 20161103
  Transmission Date: 20170207
  Serious: Yes (Life-Threatening, Other)
  Sender: FDA-Public Use
  Company Number: JP-ALXN-A201601803AA

PATIENT

DRUGS (4)
  1. PHOSRIBBON [Concomitant]
     Indication: PRODUCT USED FOR UNKNOWN INDICATION
     Dosage: 40-50MG, QID
     Route: 048
     Dates: start: 20141212, end: 20150305
  2. STRENSIQ [Suspect]
     Active Substance: ASFOTASE ALFA
     Indication: HYPOPHOSPHATASIA
     Dosage: 2 MG/KG, TIW
     Route: 058
     Dates: start: 20141029
  3. ONEALFA [Concomitant]
     Active Substance: ALFACALCIDOL
     Indication: PRODUCT USED FOR UNKNOWN INDICATION
     Dosage: 0.3 ?G, QD
     Route: 048
     Dates: start: 20141029, end: 20150216
  4. CALCIUM LACTATE [Concomitant]
     Active Substance: CALCIUM LACTATE
     Indication: PRODUCT USED FOR UNKNOWN INDICATION
     Dosage: 0.25-0.925G, 2-4TIMES A DAY
     Route: 048
     Dates: start: 20141029, end: 20150216

REACTIONS (9)
  - Neutralising antibodies positive [Unknown]
  - Drug ineffective [Unknown]
  - Hypothyroidism [Not Recovered/Not Resolved]
  - Hydrocephalus [Not Recovered/Not Resolved]
  - Loose tooth [Not Recovered/Not Resolved]
  - Craniosynostosis [Not Recovered/Not Resolved]
  - Exanthema subitum [Recovered/Resolved]
  - Rickets [Not Recovered/Not Resolved]
  - Febrile convulsion [Recovered/Resolved]

NARRATIVE: CASE EVENT DATE: 20160306
